FAERS Safety Report 6077079-7 (Version None)
Quarter: 2009Q1

REPORT INFORMATION
  Report Type: 
  Country: None (occurrence: None)
  Receive Date: 20090121
  Receipt Date: 20080505
  Transmission Date: 20090719
  Serious: Yes (Other)
  Sender: FDA-Public Use
  Company Number: HQWYE894813JUL06

PATIENT
  Age: 61 Year
  Sex: Female

DRUGS (2)
  1. PREMPRO [Suspect]
     Dosage: 6 MOS. (.5 YEARS)
     Dates: start: 19970923, end: 19980101
  2. MEDROXYPROGESTERONE [Suspect]
     Dosage: 2.5 MG

REACTIONS (1)
  - BREAST CANCER [None]
